FAERS Safety Report 9077940 (Version 1)
Quarter: 2013Q1

REPORT INFORMATION
  Report Type: Report from Study
  Country: US (occurrence: US)
  Receive Date: 20130130
  Receipt Date: 20130130
  Transmission Date: 20140127
  Serious: Yes (Hospitalization)
  Sender: FDA-Public Use
  Company Number: US-ABBOTT-12P-163-0957276-00

PATIENT
  Sex: Female
  Weight: 127.12 kg

DRUGS (7)
  1. HUMIRA 40 MG/0.8 ML PEN [Suspect]
     Indication: RHEUMATOID ARTHRITIS
     Route: 058
     Dates: start: 200203, end: 201101
  2. HUMIRA 40 MG/0.8 ML PEN [Suspect]
     Route: 058
     Dates: start: 201204
  3. METHOTREXATE [Concomitant]
     Indication: RHEUMATOID ARTHRITIS
     Dates: start: 2001, end: 201101
  4. METHOTREXATE [Concomitant]
     Dates: start: 201204
  5. FOLIC ACID [Concomitant]
     Indication: VITAMIN SUPPLEMENTATION
     Dates: start: 2001
  6. COUMADIN [Concomitant]
     Indication: ATRIAL FIBRILLATION
  7. PREVACID [Concomitant]
     Indication: GASTRIC DISORDER

REACTIONS (2)
  - Skin cosmetic procedure [Recovered/Resolved]
  - Wound infection staphylococcal [Recovered/Resolved]
